FAERS Safety Report 9397958 (Version 2)
Quarter: 2013Q3

REPORT INFORMATION
  Report Type: Spontaneous
  Country: NO (occurrence: NO)
  Receive Date: 20130712
  Receipt Date: 20130814
  Transmission Date: 20140515
  Serious: Yes (Other)
  Sender: FDA-Public Use
  Company Number: PHHY2013NO073011

PATIENT
  Sex: 0

DRUGS (4)
  1. REMIFENTANIL [Suspect]
     Route: 064
  2. THIOPENTAL [Suspect]
     Dosage: MATERNAL DOSE: 625 MG
     Route: 064
  3. SUCCINYLCHOLINE CHLORIDE [Suspect]
     Dosage: MATERNAL DOSE: 150 MG
     Route: 064
  4. SEVOFLURANE [Suspect]
     Route: 064

REACTIONS (3)
  - Acidosis [Unknown]
  - Neonatal respiratory depression [Unknown]
  - Foetal exposure during pregnancy [Unknown]
